FAERS Safety Report 23207335 (Version 1)
Quarter: 2023Q4

REPORT INFORMATION
  Report Type: Spontaneous
  Country: US (occurrence: US)
  Receive Date: 20231120
  Receipt Date: 20231120
  Transmission Date: 20240110
  Serious: Yes (Life-Threatening, Other)
  Sender: FDA-Public Use
  Company Number: US-BRACCO-2023US00626

PATIENT
  Age: 57 Year
  Sex: Male

DRUGS (18)
  1. LUMASON [Suspect]
     Active Substance: SULFUR HEXAFLUORIDE
     Indication: Echocardiogram
     Dosage: 2 ML, SINGLE
     Dates: start: 20230213, end: 20230213
  2. LUMASON [Suspect]
     Active Substance: SULFUR HEXAFLUORIDE
     Indication: Echocardiogram
     Dosage: 2 ML, SINGLE
     Dates: start: 20230213, end: 20230213
  3. LUMASON [Suspect]
     Active Substance: SULFUR HEXAFLUORIDE
     Indication: Echocardiogram
     Dosage: 2 ML, SINGLE
     Dates: start: 20230213, end: 20230213
  4. SODIUM CHLORIDE [Concomitant]
     Active Substance: SODIUM CHLORIDE
     Dosage: 3 ML
     Dates: start: 20230213, end: 20230213
  5. ROSUVASTATIN [Concomitant]
     Active Substance: ROSUVASTATIN
  6. ONDANSETRON [Concomitant]
     Active Substance: ONDANSETRON
  7. NITROGLYCERIN [Concomitant]
     Active Substance: NITROGLYCERIN
  8. LIDOCAINE [Concomitant]
     Active Substance: LIDOCAINE
     Route: 061
  9. ISOSORBIDE MONONITRATE [Concomitant]
     Active Substance: ISOSORBIDE MONONITRATE
  10. LASIX [Concomitant]
     Active Substance: FUROSEMIDE
  11. FLUTICASONE PROPIONATE [Concomitant]
     Active Substance: FLUTICASONE PROPIONATE
  12. CLOPIDOGREL [Concomitant]
     Active Substance: CLOPIDOGREL BISULFATE
     Dosage: 75 MG
  13. CHLORTHALIDONE [Concomitant]
     Active Substance: CHLORTHALIDONE
     Dosage: 25 MG
  14. BISOPROLOL FUMARATE [Concomitant]
     Active Substance: BISOPROLOL FUMARATE
     Dosage: 10 MG
  15. BACLOFEN [Concomitant]
     Active Substance: BACLOFEN
  16. AMLODIPINE [Concomitant]
     Active Substance: AMLODIPINE BESYLATE
  17. ALBUTEROL [Concomitant]
     Active Substance: ALBUTEROL
  18. TYLENOL [Concomitant]
     Active Substance: ACETAMINOPHEN
     Dosage: 650 MG, BID

REACTIONS (2)
  - Deep vein thrombosis [None]
  - Pulmonary embolism [None]

NARRATIVE: CASE EVENT DATE: 20230213
